FAERS Safety Report 11327770 (Version 1)
Quarter: 2015Q3

REPORT INFORMATION
  Report Type: Spontaneous
  Country: US (occurrence: US)
  Receive Date: 20150731
  Receipt Date: 20150731
  Transmission Date: 20151125
  Serious: No
  Sender: FDA-Public Use
  Company Number: US-BAYER-2015-387292

PATIENT
  Age: 67 Year
  Sex: Female
  Weight: 48.53 kg

DRUGS (1)
  1. ALEVE [Suspect]
     Active Substance: NAPROXEN SODIUM
     Indication: ANALGESIC THERAPY
     Dosage: 2 DF, PRN
     Route: 048
     Dates: start: 2005, end: 20150721

REACTIONS (3)
  - Feeling abnormal [Recovered/Resolved]
  - Abdominal discomfort [Recovered/Resolved]
  - Pruritus [Recovered/Resolved]

NARRATIVE: CASE EVENT DATE: 20150721
